FAERS Safety Report 17077616 (Version 1)
Quarter: 2019Q4

REPORT INFORMATION
  Report Type: Spontaneous
  Country: US (occurrence: US)
  Receive Date: 20191126
  Receipt Date: 20191126
  Transmission Date: 20200122
  Serious: Yes (Hospitalization)
  Sender: FDA-Public Use
  Company Number: US-ANAZAOHEALTH CORPORATION-2077221

PATIENT
  Age: 59 Year
  Sex: Female
  Weight: 78.64 kg

DRUGS (1)
  1. TESTOSTERONE 100 MG PELLET LOT 244701?TESTOSTERONE 37.5 MG PELLET LOT (ESTRADIOL\TESTOSTERONE) [Suspect]
     Active Substance: ESTRADIOL\TESTOSTERONE
     Indication: HORMONE THERAPY
     Route: 058
     Dates: start: 20190807

REACTIONS (1)
  - Cerebrovascular accident [Recovering/Resolving]

NARRATIVE: CASE EVENT DATE: 20191115
